FAERS Safety Report 8401370-X (Version None)
Quarter: 2012Q2

REPORT INFORMATION
  Report Type: 
  Country: None (occurrence: None)
  Receive Date: 20120601
  Receipt Date: 20120522
  Transmission Date: 20120825
  Serious: Yes (Other)
  Sender: FDA-Public Use
  Company Number: CA-JNJFOC-20120517370

PATIENT
  Sex: Female

DRUGS (6)
  1. PREVACID [Concomitant]
     Route: 065
  2. LIPITOR [Concomitant]
     Route: 065
  3. DEPO-PROVERA [Concomitant]
     Route: 065
  4. REMICADE [Suspect]
     Route: 042
     Dates: start: 20110101
  5. REMICADE [Suspect]
     Indication: HIDRADENITIS
     Route: 042
     Dates: start: 20120413
  6. DOXYCYCLINE [Concomitant]
     Route: 065

REACTIONS (4)
  - ROAD TRAFFIC ACCIDENT [None]
  - POST-TRAUMATIC NECK SYNDROME [None]
  - FALL [None]
  - LIMB INJURY [None]
